FAERS Safety Report 5718270-6 (Version None)
Quarter: 2008Q2

REPORT INFORMATION
  Report Type: 
  Country: None (occurrence: None)
  Receive Date: 20080425
  Receipt Date: 20070308
  Transmission Date: 20081010
  Serious: No
  Sender: FDA-Public Use
  Company Number: US-ASTRAZENECA-2007UW04706

PATIENT
  Age: 34 Year
  Sex: Male

DRUGS (1)
  1. ZOMIG [Suspect]
     Indication: MIGRAINE
     Route: 048

REACTIONS (14)
  - DEPRESSION [None]
  - DRUG INEFFECTIVE [None]
  - DRY MOUTH [None]
  - DRY THROAT [None]
  - DYSGEUSIA [None]
  - DYSPHAGIA [None]
  - EMOTIONAL DISTRESS [None]
  - EYE PAIN [None]
  - FEELING ABNORMAL [None]
  - HAIR DISORDER [None]
  - HYPOAESTHESIA [None]
  - ILL-DEFINED DISORDER [None]
  - MALAISE [None]
  - VISION BLURRED [None]
